FAERS Safety Report 7060575-3 (Version None)
Quarter: 2010Q4

REPORT INFORMATION
  Report Type: 
  Country: None (occurrence: None)
  Receive Date: 20101025
  Receipt Date: 20101005
  Transmission Date: 20110411
  Serious: Yes (Death, Hospitalization)
  Sender: FDA-Public Use
  Company Number: PHHY2010JP68419

PATIENT
  Age: 60 Year
  Sex: Male

DRUGS (1)
  1. STARSIS [Suspect]
     Dosage: UNK
     Route: 048
     Dates: end: 20100927

REACTIONS (2)
  - DEATH [None]
  - JAUNDICE [None]
